FAERS Safety Report 8245891-1 (Version None)
Quarter: 2012Q1

REPORT INFORMATION
  Report Type: 
  Country: None (occurrence: None)
  Receive Date: 20120328
  Receipt Date: 20120328
  Transmission Date: 20120608
  Serious: Yes (Hospitalization)
  Sender: FDA-Public Use
  Company Number: None

PATIENT
  Age: 78 Year
  Sex: Male
  Weight: 64.5 kg

DRUGS (1)
  1. PREDNISONE [Suspect]
     Dosage: 40 MG EVERY DAY PO
     Route: 048
     Dates: start: 20110214, end: 20110314

REACTIONS (1)
  - DIABETES MELLITUS [None]
